FAERS Safety Report 6271050-8 (Version None)
Quarter: 2009Q3

REPORT INFORMATION
  Report Type: 
  Country: None (occurrence: None)
  Receive Date: 20090716
  Receipt Date: 20090707
  Transmission Date: 20100115
  Serious: Yes (Hospitalization)
  Sender: FDA-Public Use
  Company Number: US-ABBOTT-09P-163-0584056-00

PATIENT
  Sex: Female
  Weight: 70.37 kg

DRUGS (14)
  1. HUMIRA [Suspect]
     Indication: CROHN'S DISEASE
     Route: 058
     Dates: start: 20070516, end: 20090706
  2. HUMIRA [Suspect]
  3. PENTASA [Concomitant]
     Indication: DRUG USE FOR UNKNOWN INDICATION
     Route: 048
  4. PRILOSEC [Concomitant]
     Indication: DRUG USE FOR UNKNOWN INDICATION
  5. SUPER BIFIDO (?) [Concomitant]
     Indication: DRUG USE FOR UNKNOWN INDICATION
  6. NEURONTIN [Concomitant]
     Indication: DRUG USE FOR UNKNOWN INDICATION
  7. CLONAZEPAM [Concomitant]
     Indication: DRUG USE FOR UNKNOWN INDICATION
  8. ZOLPIDEM [Concomitant]
     Indication: DRUG USE FOR UNKNOWN INDICATION
  9. VIT B 12 [Concomitant]
     Indication: DRUG USE FOR UNKNOWN INDICATION
     Route: 050
  10. NORTRIPTYLINE HCL [Concomitant]
     Indication: DRUG USE FOR UNKNOWN INDICATION
  11. M.V.I. [Concomitant]
     Indication: DRUG USE FOR UNKNOWN INDICATION
  12. CA 600+D [Concomitant]
     Indication: DRUG USE FOR UNKNOWN INDICATION
  13. VIT C [Concomitant]
     Indication: DRUG USE FOR UNKNOWN INDICATION
  14. IRON [Concomitant]
     Indication: DRUG USE FOR UNKNOWN INDICATION

REACTIONS (12)
  - BASAL CELL CARCINOMA [None]
  - BLOOD MAGNESIUM DECREASED [None]
  - DYSPHONIA [None]
  - DYSPNOEA [None]
  - ERYTHEMA [None]
  - EYE PAIN [None]
  - HEADACHE [None]
  - OCULAR HYPERAEMIA [None]
  - PAIN OF SKIN [None]
  - PALPITATIONS [None]
  - PRURITUS [None]
  - SKIN BURNING SENSATION [None]
